FAERS Safety Report 6416974-3 (Version None)
Quarter: 2009Q4

REPORT INFORMATION
  Report Type: 
  Country: None (occurrence: None)
  Receive Date: 20091023
  Receipt Date: 20091014
  Transmission Date: 20100525
  Serious: Yes (Hospitalization)
  Sender: FDA-Public Use
  Company Number: 2009011567

PATIENT
  Age: 72 Year
  Sex: Male
  Weight: 118 kg

DRUGS (2)
  1. TREANDA [Suspect]
     Indication: CHRONIC LYMPHOCYTIC LEUKAEMIA
     Dosage: 90 MG/M2, UID/QD, INTRAVENOUS
     Route: 042
     Dates: start: 20090608, end: 20090609
  2. RITUXAN [Suspect]
     Indication: CHRONIC LYMPHOCYTIC LEUKAEMIA
     Dosage: 500 MG/M2, INTRAVENOUS
     Route: 042
     Dates: start: 20090608, end: 20090609

REACTIONS (2)
  - EPIDIDYMITIS [None]
  - HAEMOGLOBIN DECREASED [None]
